FAERS Safety Report 5583428-6 (Version None)
Quarter: 2008Q1

REPORT INFORMATION
  Report Type: 
  Country: None (occurrence: None)
  Receive Date: 20080107
  Receipt Date: 20071228
  Transmission Date: 20080703
  Serious: Yes (Other)
  Sender: FDA-Public Use
  Company Number: US-PFIZER INC-2008000431

PATIENT
  Sex: Male
  Weight: 72.6 kg

DRUGS (1)
  1. CAMPTOSAR [Suspect]
     Indication: COLON CANCER
     Dates: start: 20071022, end: 20071101

REACTIONS (1)
  - MUSCLE TWITCHING [None]
